FAERS Safety Report 20753034 (Version 1)
Quarter: 2022Q2

REPORT INFORMATION
  Report Type: Spontaneous
  Country: US (occurrence: None)
  Receive Date: 20220426
  Receipt Date: 20220426
  Transmission Date: 20220721
  Serious: No
  Sender: FDA-Public Use
  Company Number: US-ROCHE-2992059

PATIENT
  Sex: Male
  Weight: 60.836 kg

DRUGS (1)
  1. ESBRIET [Suspect]
     Active Substance: PIRFENIDONE
     Indication: Idiopathic pulmonary fibrosis
     Dosage: THREE, THREE AND TWO
     Route: 048

REACTIONS (2)
  - Sinusitis [Unknown]
  - Off label use [Unknown]
